FAERS Safety Report 7927760 (Version 2)
Quarter: 2012Q4

REPORT INFORMATION
  Report Type: 
  Country: US (occurrence: US)
  Receive Date: 20110503
  Receipt Date: 20121016
  Transmission Date: 20130627
  Serious: Yes (Death, Other)
  Sender: FDA-Public Use
  Company Number: US-PFIZER INC-2009262508

PATIENT
  Age: 62 Year
  Sex: Female

DRUGS (5)
  1. PROVERA [Suspect]
     Indication: HORMONE REPLACEMENT THERAPY
     Dosage: 2.5 mg, UNK
     Route: 048
     Dates: end: 2002
  2. ESTRACE [Suspect]
     Indication: HORMONE REPLACEMENT THERAPY
     Dosage: 0.5 mg, UNK
     Dates: start: 1996, end: 1999
  3. CYCRIN [Suspect]
     Indication: HORMONE REPLACEMENT THERAPY
     Dosage: UNK
     Dates: start: 1997, end: 1999
  4. ESTRADIOL [Suspect]
     Indication: HORMONE REPLACEMENT THERAPY
     Dosage: 1 mg, UNK
     Dates: start: 1997, end: 2002
  5. MEDROXYPROGESTERONE [Suspect]
     Indication: HORMONE REPLACEMENT THERAPY
     Dosage: 2.5 mg, UNK
     Dates: start: 1999

REACTIONS (1)
  - Invasive ductal breast carcinoma [Fatal]
